FAERS Safety Report 9348064 (Version 1)
Quarter: 2013Q2

REPORT INFORMATION
  Report Type: Spontaneous
  Country: US (occurrence: US)
  Receive Date: 20130614
  Receipt Date: 20130614
  Transmission Date: 20140414
  Serious: Yes (Other)
  Sender: FDA-Public Use
  Company Number: US-JNJFOC-20130607272

PATIENT
  Sex: 0

DRUGS (4)
  1. DOXORUBICIN [Suspect]
     Indication: NEOPLASM
     Dosage: ON DAYS 1-3
     Route: 041
  2. OXALIPLATIN [Suspect]
     Indication: NEOPLASM
     Dosage: IN 250-500 ML OF WATER WITH 5% DEXTROSE, OVER 2 HOURS ON DAY 1 OF A 21 DAY COURSE
     Route: 042
  3. DEXRAZOXANE [Suspect]
     Indication: CARDIOVASCULAR EVENT PROPHYLAXIS
     Route: 065
  4. GRANULOCYTE COLONY STIMULATING FACTOR [Concomitant]
     Indication: PROPHYLAXIS
     Route: 065

REACTIONS (2)
  - Alanine aminotransferase abnormal [Unknown]
  - Off label use [Unknown]
